FAERS Safety Report 25435702 (Version 2)
Quarter: 2025Q3

REPORT INFORMATION
  Report Type: Spontaneous
  Country: CA (occurrence: CA)
  Receive Date: 20250613
  Receipt Date: 20250915
  Transmission Date: 20251020
  Serious: Yes (Other)
  Sender: MYLAN
  Company Number: CA-MYLANLABS-2025M1042812

PATIENT
  Age: 50 Year
  Sex: Female

DRUGS (220)
  1. AMLODIPINE [Suspect]
     Active Substance: AMLODIPINE BESYLATE
     Indication: Migraine
  2. AMLODIPINE [Suspect]
     Active Substance: AMLODIPINE BESYLATE
     Route: 048
  3. AMLODIPINE [Suspect]
     Active Substance: AMLODIPINE BESYLATE
     Route: 048
  4. AMLODIPINE [Suspect]
     Active Substance: AMLODIPINE BESYLATE
  5. ZOPICLONE [Suspect]
     Active Substance: ZOPICLONE
     Indication: Migraine
  6. ZOPICLONE [Suspect]
     Active Substance: ZOPICLONE
     Route: 065
  7. ZOPICLONE [Suspect]
     Active Substance: ZOPICLONE
     Route: 065
  8. ZOPICLONE [Suspect]
     Active Substance: ZOPICLONE
  9. ATENOLOL [Suspect]
     Active Substance: ATENOLOL
     Indication: Product used for unknown indication
     Route: 048
  10. ATENOLOL [Suspect]
     Active Substance: ATENOLOL
  11. ATENOLOL [Suspect]
     Active Substance: ATENOLOL
  12. ATENOLOL [Suspect]
     Active Substance: ATENOLOL
     Route: 048
  13. ATENOLOL [Suspect]
     Active Substance: ATENOLOL
     Route: 065
  14. ATENOLOL [Suspect]
     Active Substance: ATENOLOL
  15. ATENOLOL [Suspect]
     Active Substance: ATENOLOL
  16. ATENOLOL [Suspect]
     Active Substance: ATENOLOL
     Route: 065
  17. CANDESARTAN [Suspect]
     Active Substance: CANDESARTAN
     Indication: Migraine
  18. CANDESARTAN [Suspect]
     Active Substance: CANDESARTAN
  19. CANDESARTAN [Suspect]
     Active Substance: CANDESARTAN
     Route: 048
  20. CANDESARTAN [Suspect]
     Active Substance: CANDESARTAN
     Route: 048
  21. CANDESARTAN [Suspect]
     Active Substance: CANDESARTAN
     Dosage: 16 MILLIGRAM, QD (ONCE DAILY)
  22. CANDESARTAN [Suspect]
     Active Substance: CANDESARTAN
     Dosage: 16 MILLIGRAM, QD (ONCE DAILY)
  23. CANDESARTAN [Suspect]
     Active Substance: CANDESARTAN
     Dosage: 16 MILLIGRAM, QD (ONCE DAILY)
     Route: 048
  24. CANDESARTAN [Suspect]
     Active Substance: CANDESARTAN
     Dosage: 16 MILLIGRAM, QD (ONCE DAILY)
     Route: 048
  25. GABAPENTIN [Suspect]
     Active Substance: GABAPENTIN
     Indication: Product used for unknown indication
  26. GABAPENTIN [Suspect]
     Active Substance: GABAPENTIN
     Route: 065
  27. GABAPENTIN [Suspect]
     Active Substance: GABAPENTIN
     Route: 065
  28. GABAPENTIN [Suspect]
     Active Substance: GABAPENTIN
  29. LAMOTRIGINE [Suspect]
     Active Substance: LAMOTRIGINE
     Indication: Product used for unknown indication
     Route: 065
  30. LAMOTRIGINE [Suspect]
     Active Substance: LAMOTRIGINE
  31. LAMOTRIGINE [Suspect]
     Active Substance: LAMOTRIGINE
  32. LAMOTRIGINE [Suspect]
     Active Substance: LAMOTRIGINE
     Route: 065
  33. LAMOTRIGINE [Suspect]
     Active Substance: LAMOTRIGINE
     Route: 065
  34. LAMOTRIGINE [Suspect]
     Active Substance: LAMOTRIGINE
  35. LAMOTRIGINE [Suspect]
     Active Substance: LAMOTRIGINE
  36. LAMOTRIGINE [Suspect]
     Active Substance: LAMOTRIGINE
     Route: 065
  37. RIZATRIPTAN [Suspect]
     Active Substance: RIZATRIPTAN
     Indication: Product used for unknown indication
     Route: 065
  38. RIZATRIPTAN [Suspect]
     Active Substance: RIZATRIPTAN
  39. RIZATRIPTAN [Suspect]
     Active Substance: RIZATRIPTAN
  40. RIZATRIPTAN [Suspect]
     Active Substance: RIZATRIPTAN
     Route: 065
  41. RIZATRIPTAN [Suspect]
     Active Substance: RIZATRIPTAN
     Route: 065
  42. RIZATRIPTAN [Suspect]
     Active Substance: RIZATRIPTAN
  43. RIZATRIPTAN [Suspect]
     Active Substance: RIZATRIPTAN
  44. RIZATRIPTAN [Suspect]
     Active Substance: RIZATRIPTAN
     Route: 065
  45. METOCLOPRAMIDE [Suspect]
     Active Substance: METOCLOPRAMIDE
     Indication: Product used for unknown indication
  46. METOCLOPRAMIDE [Suspect]
     Active Substance: METOCLOPRAMIDE
     Route: 065
  47. METOCLOPRAMIDE [Suspect]
     Active Substance: METOCLOPRAMIDE
     Route: 065
  48. METOCLOPRAMIDE [Suspect]
     Active Substance: METOCLOPRAMIDE
  49. NAPROXEN [Suspect]
     Active Substance: NAPROXEN
     Indication: Product used for unknown indication
  50. NAPROXEN [Suspect]
     Active Substance: NAPROXEN
     Route: 065
  51. NAPROXEN [Suspect]
     Active Substance: NAPROXEN
     Route: 065
  52. NAPROXEN [Suspect]
     Active Substance: NAPROXEN
  53. NIFEDIPINE [Suspect]
     Active Substance: NIFEDIPINE
     Indication: Product used for unknown indication
  54. NIFEDIPINE [Suspect]
     Active Substance: NIFEDIPINE
     Route: 065
  55. NIFEDIPINE [Suspect]
     Active Substance: NIFEDIPINE
     Route: 065
  56. NIFEDIPINE [Suspect]
     Active Substance: NIFEDIPINE
  57. NORTRIPTYLINE [Suspect]
     Active Substance: NORTRIPTYLINE
     Indication: Product used for unknown indication
  58. NORTRIPTYLINE [Suspect]
     Active Substance: NORTRIPTYLINE
     Route: 065
  59. NORTRIPTYLINE [Suspect]
     Active Substance: NORTRIPTYLINE
     Route: 065
  60. NORTRIPTYLINE [Suspect]
     Active Substance: NORTRIPTYLINE
  61. TOPIRAMATE [Suspect]
     Active Substance: TOPIRAMATE
     Indication: Product used for unknown indication
  62. TOPIRAMATE [Suspect]
     Active Substance: TOPIRAMATE
  63. TOPIRAMATE [Suspect]
     Active Substance: TOPIRAMATE
     Route: 065
  64. TOPIRAMATE [Suspect]
     Active Substance: TOPIRAMATE
     Route: 065
  65. TOPIRAMATE [Suspect]
     Active Substance: TOPIRAMATE
  66. TOPIRAMATE [Suspect]
     Active Substance: TOPIRAMATE
  67. TOPIRAMATE [Suspect]
     Active Substance: TOPIRAMATE
     Route: 065
  68. TOPIRAMATE [Suspect]
     Active Substance: TOPIRAMATE
     Route: 065
  69. VALPROIC ACID [Suspect]
     Active Substance: VALPROIC ACID
     Indication: Product used for unknown indication
  70. VALPROIC ACID [Suspect]
     Active Substance: VALPROIC ACID
     Route: 065
  71. VALPROIC ACID [Suspect]
     Active Substance: VALPROIC ACID
     Route: 065
  72. VALPROIC ACID [Suspect]
     Active Substance: VALPROIC ACID
  73. VENLAFAXINE [Suspect]
     Active Substance: VENLAFAXINE HYDROCHLORIDE
     Indication: Product used for unknown indication
  74. VENLAFAXINE [Suspect]
     Active Substance: VENLAFAXINE HYDROCHLORIDE
     Route: 065
  75. VENLAFAXINE [Suspect]
     Active Substance: VENLAFAXINE HYDROCHLORIDE
     Route: 065
  76. VENLAFAXINE [Suspect]
     Active Substance: VENLAFAXINE HYDROCHLORIDE
  77. VERAPAMIL [Suspect]
     Active Substance: VERAPAMIL HYDROCHLORIDE
     Indication: Migraine
  78. VERAPAMIL [Suspect]
     Active Substance: VERAPAMIL HYDROCHLORIDE
     Route: 065
  79. VERAPAMIL [Suspect]
     Active Substance: VERAPAMIL HYDROCHLORIDE
     Route: 065
  80. VERAPAMIL [Suspect]
     Active Substance: VERAPAMIL HYDROCHLORIDE
  81. CLONIDINE [Suspect]
     Active Substance: CLONIDINE
     Indication: Product used for unknown indication
     Route: 048
  82. CLONIDINE [Suspect]
     Active Substance: CLONIDINE
  83. CLONIDINE [Suspect]
     Active Substance: CLONIDINE
  84. CLONIDINE [Suspect]
     Active Substance: CLONIDINE
     Route: 048
  85. CLONIDINE [Suspect]
     Active Substance: CLONIDINE
     Route: 065
  86. CLONIDINE [Suspect]
     Active Substance: CLONIDINE
  87. CLONIDINE [Suspect]
     Active Substance: CLONIDINE
  88. CLONIDINE [Suspect]
     Active Substance: CLONIDINE
     Route: 065
  89. NARATRIPTAN HYDROCHLORIDE [Suspect]
     Active Substance: NARATRIPTAN HYDROCHLORIDE
     Indication: Product used for unknown indication
  90. NARATRIPTAN HYDROCHLORIDE [Suspect]
     Active Substance: NARATRIPTAN HYDROCHLORIDE
     Route: 065
  91. NARATRIPTAN HYDROCHLORIDE [Suspect]
     Active Substance: NARATRIPTAN HYDROCHLORIDE
     Route: 065
  92. NARATRIPTAN HYDROCHLORIDE [Suspect]
     Active Substance: NARATRIPTAN HYDROCHLORIDE
  93. CORGARD [Suspect]
     Active Substance: NADOLOL
     Indication: Product used for unknown indication
  94. CORGARD [Suspect]
     Active Substance: NADOLOL
     Route: 065
  95. CORGARD [Suspect]
     Active Substance: NADOLOL
     Route: 065
  96. CORGARD [Suspect]
     Active Substance: NADOLOL
  97. TRAZODONE HYDROCHLORIDE [Suspect]
     Active Substance: TRAZODONE HYDROCHLORIDE
     Indication: Product used for unknown indication
  98. TRAZODONE HYDROCHLORIDE [Suspect]
     Active Substance: TRAZODONE HYDROCHLORIDE
     Route: 065
  99. TRAZODONE HYDROCHLORIDE [Suspect]
     Active Substance: TRAZODONE HYDROCHLORIDE
     Route: 065
  100. TRAZODONE HYDROCHLORIDE [Suspect]
     Active Substance: TRAZODONE HYDROCHLORIDE
  101. NARATRIPTAN HYDROCHLORIDE [Suspect]
     Active Substance: NARATRIPTAN HYDROCHLORIDE
     Indication: Product used for unknown indication
  102. NARATRIPTAN HYDROCHLORIDE [Suspect]
     Active Substance: NARATRIPTAN HYDROCHLORIDE
     Route: 065
  103. NARATRIPTAN HYDROCHLORIDE [Suspect]
     Active Substance: NARATRIPTAN HYDROCHLORIDE
     Route: 065
  104. NARATRIPTAN HYDROCHLORIDE [Suspect]
     Active Substance: NARATRIPTAN HYDROCHLORIDE
  105. PREDNISONE [Suspect]
     Active Substance: PREDNISONE
     Indication: Product used for unknown indication
  106. PREDNISONE [Suspect]
     Active Substance: PREDNISONE
     Route: 065
  107. PREDNISONE [Suspect]
     Active Substance: PREDNISONE
     Route: 065
  108. PREDNISONE [Suspect]
     Active Substance: PREDNISONE
  109. PROPRANOLOL HYDROCHLORIDE [Suspect]
     Active Substance: PROPRANOLOL HYDROCHLORIDE
     Indication: Migraine
     Route: 065
  110. PROPRANOLOL HYDROCHLORIDE [Suspect]
     Active Substance: PROPRANOLOL HYDROCHLORIDE
  111. PROPRANOLOL HYDROCHLORIDE [Suspect]
     Active Substance: PROPRANOLOL HYDROCHLORIDE
  112. PROPRANOLOL HYDROCHLORIDE [Suspect]
     Active Substance: PROPRANOLOL HYDROCHLORIDE
     Route: 065
  113. PROPRANOLOL HYDROCHLORIDE [Suspect]
     Active Substance: PROPRANOLOL HYDROCHLORIDE
     Dosage: 40 MILLIGRAM, BID (TWICE DAILY)
     Route: 065
  114. PROPRANOLOL HYDROCHLORIDE [Suspect]
     Active Substance: PROPRANOLOL HYDROCHLORIDE
     Dosage: 40 MILLIGRAM, BID (TWICE DAILY)
  115. PROPRANOLOL HYDROCHLORIDE [Suspect]
     Active Substance: PROPRANOLOL HYDROCHLORIDE
     Dosage: 40 MILLIGRAM, BID (TWICE DAILY)
  116. PROPRANOLOL HYDROCHLORIDE [Suspect]
     Active Substance: PROPRANOLOL HYDROCHLORIDE
     Dosage: 40 MILLIGRAM, BID (TWICE DAILY)
     Route: 065
  117. PROPRANOLOL HYDROCHLORIDE [Suspect]
     Active Substance: PROPRANOLOL HYDROCHLORIDE
     Route: 065
  118. PROPRANOLOL HYDROCHLORIDE [Suspect]
     Active Substance: PROPRANOLOL HYDROCHLORIDE
     Route: 065
  119. PROPRANOLOL HYDROCHLORIDE [Suspect]
     Active Substance: PROPRANOLOL HYDROCHLORIDE
  120. PROPRANOLOL HYDROCHLORIDE [Suspect]
     Active Substance: PROPRANOLOL HYDROCHLORIDE
  121. PROPRANOLOL HYDROCHLORIDE [Suspect]
     Active Substance: PROPRANOLOL HYDROCHLORIDE
     Dosage: 80 MILLIGRAM, QD (ONCE A DAY)
  122. PROPRANOLOL HYDROCHLORIDE [Suspect]
     Active Substance: PROPRANOLOL HYDROCHLORIDE
     Dosage: 80 MILLIGRAM, QD (ONCE A DAY)
  123. PROPRANOLOL HYDROCHLORIDE [Suspect]
     Active Substance: PROPRANOLOL HYDROCHLORIDE
     Dosage: 80 MILLIGRAM, QD (ONCE A DAY)
     Route: 065
  124. PROPRANOLOL HYDROCHLORIDE [Suspect]
     Active Substance: PROPRANOLOL HYDROCHLORIDE
     Dosage: 80 MILLIGRAM, QD (ONCE A DAY)
     Route: 065
  125. PROPRANOLOL HYDROCHLORIDE [Suspect]
     Active Substance: PROPRANOLOL HYDROCHLORIDE
     Dosage: 40 MILLIGRAM, QD (ONCE A DAY)
     Route: 065
  126. PROPRANOLOL HYDROCHLORIDE [Suspect]
     Active Substance: PROPRANOLOL HYDROCHLORIDE
     Dosage: 40 MILLIGRAM, QD (ONCE A DAY)
  127. PROPRANOLOL HYDROCHLORIDE [Suspect]
     Active Substance: PROPRANOLOL HYDROCHLORIDE
     Dosage: 40 MILLIGRAM, QD (ONCE A DAY)
  128. PROPRANOLOL HYDROCHLORIDE [Suspect]
     Active Substance: PROPRANOLOL HYDROCHLORIDE
     Dosage: 40 MILLIGRAM, QD (ONCE A DAY)
     Route: 065
  129. PROPRANOLOL HYDROCHLORIDE [Suspect]
     Active Substance: PROPRANOLOL HYDROCHLORIDE
     Dosage: 40 MILLIGRAM, BID (Q12H, EVERY 12 HOURS)
     Route: 065
  130. PROPRANOLOL HYDROCHLORIDE [Suspect]
     Active Substance: PROPRANOLOL HYDROCHLORIDE
     Dosage: 40 MILLIGRAM, BID (Q12H, EVERY 12 HOURS)
  131. PROPRANOLOL HYDROCHLORIDE [Suspect]
     Active Substance: PROPRANOLOL HYDROCHLORIDE
     Dosage: 40 MILLIGRAM, BID (Q12H, EVERY 12 HOURS)
  132. PROPRANOLOL HYDROCHLORIDE [Suspect]
     Active Substance: PROPRANOLOL HYDROCHLORIDE
     Dosage: 40 MILLIGRAM, BID (Q12H, EVERY 12 HOURS)
     Route: 065
  133. PROCHLORPERAZINE [Suspect]
     Active Substance: PROCHLORPERAZINE
     Indication: Product used for unknown indication
  134. PROCHLORPERAZINE [Suspect]
     Active Substance: PROCHLORPERAZINE
     Route: 065
  135. PROCHLORPERAZINE [Suspect]
     Active Substance: PROCHLORPERAZINE
     Route: 065
  136. PROCHLORPERAZINE [Suspect]
     Active Substance: PROCHLORPERAZINE
  137. AIMOVIG [Suspect]
     Active Substance: ERENUMAB-AOOE
     Indication: Migraine
  138. AIMOVIG [Suspect]
     Active Substance: ERENUMAB-AOOE
     Route: 065
  139. AIMOVIG [Suspect]
     Active Substance: ERENUMAB-AOOE
     Route: 065
  140. AIMOVIG [Suspect]
     Active Substance: ERENUMAB-AOOE
  141. PIZOTYLINE MALEATE [Suspect]
     Active Substance: PIZOTYLINE MALEATE
     Indication: Product used for unknown indication
  142. PIZOTYLINE MALEATE [Suspect]
     Active Substance: PIZOTYLINE MALEATE
     Route: 065
  143. PIZOTYLINE MALEATE [Suspect]
     Active Substance: PIZOTYLINE MALEATE
     Route: 065
  144. PIZOTYLINE MALEATE [Suspect]
     Active Substance: PIZOTYLINE MALEATE
  145. DIHYDROERGOTAMINE MESYLATE [Suspect]
     Active Substance: DIHYDROERGOTAMINE MESYLATE
     Indication: Migraine
  146. DIHYDROERGOTAMINE MESYLATE [Suspect]
     Active Substance: DIHYDROERGOTAMINE MESYLATE
     Route: 065
  147. DIHYDROERGOTAMINE MESYLATE [Suspect]
     Active Substance: DIHYDROERGOTAMINE MESYLATE
     Route: 065
  148. DIHYDROERGOTAMINE MESYLATE [Suspect]
     Active Substance: DIHYDROERGOTAMINE MESYLATE
  149. DIHYDROERGOTAMINE [Suspect]
     Active Substance: DIHYDROERGOTAMINE
     Indication: Migraine
  150. DIHYDROERGOTAMINE [Suspect]
     Active Substance: DIHYDROERGOTAMINE
     Route: 065
  151. DIHYDROERGOTAMINE [Suspect]
     Active Substance: DIHYDROERGOTAMINE
     Route: 065
  152. DIHYDROERGOTAMINE [Suspect]
     Active Substance: DIHYDROERGOTAMINE
  153. PROCHLORPERAZINE [Suspect]
     Active Substance: PROCHLORPERAZINE
     Indication: Nausea
  154. PROCHLORPERAZINE [Suspect]
     Active Substance: PROCHLORPERAZINE
     Route: 065
  155. PROCHLORPERAZINE [Suspect]
     Active Substance: PROCHLORPERAZINE
     Route: 065
  156. PROCHLORPERAZINE [Suspect]
     Active Substance: PROCHLORPERAZINE
  157. DIVALPROEX SODIUM [Suspect]
     Active Substance: DIVALPROEX SODIUM
     Indication: Product used for unknown indication
  158. DIVALPROEX SODIUM [Suspect]
     Active Substance: DIVALPROEX SODIUM
     Route: 065
  159. DIVALPROEX SODIUM [Suspect]
     Active Substance: DIVALPROEX SODIUM
     Route: 065
  160. DIVALPROEX SODIUM [Suspect]
     Active Substance: DIVALPROEX SODIUM
  161. VALPROATE SODIUM [Suspect]
     Active Substance: VALPROATE SODIUM
     Indication: Product used for unknown indication
  162. VALPROATE SODIUM [Suspect]
     Active Substance: VALPROATE SODIUM
     Route: 065
  163. VALPROATE SODIUM [Suspect]
     Active Substance: VALPROATE SODIUM
     Route: 065
  164. VALPROATE SODIUM [Suspect]
     Active Substance: VALPROATE SODIUM
  165. DIVALPROEX SODIUM [Suspect]
     Active Substance: DIVALPROEX SODIUM
     Indication: Product used for unknown indication
  166. DIVALPROEX SODIUM [Suspect]
     Active Substance: DIVALPROEX SODIUM
     Route: 065
  167. DIVALPROEX SODIUM [Suspect]
     Active Substance: DIVALPROEX SODIUM
     Route: 065
  168. DIVALPROEX SODIUM [Suspect]
     Active Substance: DIVALPROEX SODIUM
  169. FROVATRIPTAN SUCCINATE [Concomitant]
     Active Substance: FROVATRIPTAN SUCCINATE
     Indication: Product used for unknown indication
  170. FROVATRIPTAN SUCCINATE [Concomitant]
     Active Substance: FROVATRIPTAN SUCCINATE
     Route: 065
  171. FROVATRIPTAN SUCCINATE [Concomitant]
     Active Substance: FROVATRIPTAN SUCCINATE
     Route: 065
  172. FROVATRIPTAN SUCCINATE [Concomitant]
     Active Substance: FROVATRIPTAN SUCCINATE
  173. TENORMIN [Concomitant]
     Active Substance: ATENOLOL
     Indication: Product used for unknown indication
  174. TENORMIN [Concomitant]
     Active Substance: ATENOLOL
     Route: 065
  175. TENORMIN [Concomitant]
     Active Substance: ATENOLOL
     Route: 065
  176. TENORMIN [Concomitant]
     Active Substance: ATENOLOL
  177. TYLENOL [Concomitant]
     Active Substance: ACETAMINOPHEN
     Indication: Product used for unknown indication
  178. TYLENOL [Concomitant]
     Active Substance: ACETAMINOPHEN
     Route: 065
  179. TYLENOL [Concomitant]
     Active Substance: ACETAMINOPHEN
     Route: 065
  180. TYLENOL [Concomitant]
     Active Substance: ACETAMINOPHEN
  181. VALPROATE SODIUM [Concomitant]
     Active Substance: VALPROATE SODIUM
     Indication: Product used for unknown indication
  182. VALPROATE SODIUM [Concomitant]
     Active Substance: VALPROATE SODIUM
     Route: 065
  183. VALPROATE SODIUM [Concomitant]
     Active Substance: VALPROATE SODIUM
     Route: 065
  184. VALPROATE SODIUM [Concomitant]
     Active Substance: VALPROATE SODIUM
  185. BOTULINUM TOXIN TYPE A [Concomitant]
     Active Substance: BOTULINUM TOXIN TYPE A
     Indication: Product used for unknown indication
  186. BOTULINUM TOXIN TYPE A [Concomitant]
     Active Substance: BOTULINUM TOXIN TYPE A
     Route: 030
  187. BOTULINUM TOXIN TYPE A [Concomitant]
     Active Substance: BOTULINUM TOXIN TYPE A
     Route: 030
  188. BOTULINUM TOXIN TYPE A [Concomitant]
     Active Substance: BOTULINUM TOXIN TYPE A
  189. ELAVIL [Concomitant]
     Active Substance: AMITRIPTYLINE HYDROCHLORIDE
     Indication: Product used for unknown indication
  190. ELAVIL [Concomitant]
     Active Substance: AMITRIPTYLINE HYDROCHLORIDE
     Route: 065
  191. ELAVIL [Concomitant]
     Active Substance: AMITRIPTYLINE HYDROCHLORIDE
     Route: 065
  192. ELAVIL [Concomitant]
     Active Substance: AMITRIPTYLINE HYDROCHLORIDE
  193. GRAVOL [Concomitant]
     Active Substance: DIMENHYDRINATE
     Indication: Product used for unknown indication
  194. GRAVOL [Concomitant]
     Active Substance: DIMENHYDRINATE
     Route: 065
  195. GRAVOL [Concomitant]
     Active Substance: DIMENHYDRINATE
     Route: 065
  196. GRAVOL [Concomitant]
     Active Substance: DIMENHYDRINATE
  197. ALLOPURINOL [Concomitant]
     Active Substance: ALLOPURINOL
     Indication: Product used for unknown indication
  198. ALLOPURINOL [Concomitant]
     Active Substance: ALLOPURINOL
     Route: 065
  199. ALLOPURINOL [Concomitant]
     Active Substance: ALLOPURINOL
     Route: 065
  200. ALLOPURINOL [Concomitant]
     Active Substance: ALLOPURINOL
  201. VALPROATE SODIUM [Concomitant]
     Active Substance: VALPROATE SODIUM
     Indication: Product used for unknown indication
  202. VALPROATE SODIUM [Concomitant]
     Active Substance: VALPROATE SODIUM
     Route: 065
  203. VALPROATE SODIUM [Concomitant]
     Active Substance: VALPROATE SODIUM
     Route: 065
  204. VALPROATE SODIUM [Concomitant]
     Active Substance: VALPROATE SODIUM
  205. ELAVIL [Concomitant]
     Active Substance: AMITRIPTYLINE HYDROCHLORIDE
     Indication: Product used for unknown indication
  206. ELAVIL [Concomitant]
     Active Substance: AMITRIPTYLINE HYDROCHLORIDE
     Route: 065
  207. ELAVIL [Concomitant]
     Active Substance: AMITRIPTYLINE HYDROCHLORIDE
     Route: 065
  208. ELAVIL [Concomitant]
     Active Substance: AMITRIPTYLINE HYDROCHLORIDE
  209. CORGARD [Concomitant]
     Active Substance: NADOLOL
     Indication: Product used for unknown indication
  210. CORGARD [Concomitant]
     Active Substance: NADOLOL
     Route: 065
  211. CORGARD [Concomitant]
     Active Substance: NADOLOL
     Route: 065
  212. CORGARD [Concomitant]
     Active Substance: NADOLOL
  213. BOTULINUM TOXIN TYPE A [Concomitant]
     Active Substance: BOTULINUM TOXIN TYPE A
     Indication: Product used for unknown indication
  214. BOTULINUM TOXIN TYPE A [Concomitant]
     Active Substance: BOTULINUM TOXIN TYPE A
     Route: 065
  215. BOTULINUM TOXIN TYPE A [Concomitant]
     Active Substance: BOTULINUM TOXIN TYPE A
     Route: 065
  216. BOTULINUM TOXIN TYPE A [Concomitant]
     Active Substance: BOTULINUM TOXIN TYPE A
  217. VALPROATE SODIUM [Concomitant]
     Active Substance: VALPROATE SODIUM
     Indication: Product used for unknown indication
  218. VALPROATE SODIUM [Concomitant]
     Active Substance: VALPROATE SODIUM
     Route: 065
  219. VALPROATE SODIUM [Concomitant]
     Active Substance: VALPROATE SODIUM
     Route: 065
  220. VALPROATE SODIUM [Concomitant]
     Active Substance: VALPROATE SODIUM

REACTIONS (18)
  - Cough [Unknown]
  - Abdominal pain [Unknown]
  - Diarrhoea [Unknown]
  - Dyspnoea [Unknown]
  - Anuria [Unknown]
  - Dyspepsia [Unknown]
  - Neovascularisation [Unknown]
  - Extrapyramidal disorder [Unknown]
  - Nausea [Unknown]
  - Weight decreased [Unknown]
  - Migraine [Unknown]
  - Paradoxical drug reaction [Unknown]
  - Treatment failure [Unknown]
  - Off label use [Unknown]
  - Product use issue [Unknown]
  - Drug ineffective for unapproved indication [Unknown]
  - Drug ineffective [Unknown]
  - Product use in unapproved indication [Unknown]
